FAERS Safety Report 13557164 (Version 3)
Quarter: 2017Q2

REPORT INFORMATION
  Report Type: Spontaneous
  Country: US (occurrence: US)
  Receive Date: 20170518
  Receipt Date: 20170608
  Transmission Date: 20170830
  Serious: Yes (Death)
  Sender: FDA-Public Use
  Company Number: US-UNITED THERAPEUTICS-UNT-2017-007123

PATIENT

DRUGS (1)
  1. REMODULIN [Suspect]
     Active Substance: TREPROSTINIL
     Indication: PORTOPULMONARY HYPERTENSION
     Dosage: 0.00125 ?G/KG, CONTINUING
     Route: 058

REACTIONS (1)
  - Hepatic failure [Fatal]
